FAERS Safety Report 13611864 (Version 1)
Quarter: 2017Q2

REPORT INFORMATION
  Report Type: Spontaneous
  Country: JP (occurrence: JP)
  Receive Date: 20170605
  Receipt Date: 20170605
  Transmission Date: 20170830
  Serious: Yes (Other)
  Sender: FDA-Public Use
  Company Number: JP-MYLANLABS-2017M1033220

PATIENT

DRUGS (6)
  1. CLARITHROMYCIN. [Suspect]
     Active Substance: CLARITHROMYCIN
     Indication: ATYPICAL MYCOBACTERIAL INFECTION
     Dosage: UNK
     Route: 065
  2. RIFAMPICIN [Concomitant]
     Active Substance: RIFAMPIN
     Indication: ATYPICAL MYCOBACTERIAL INFECTION
     Dosage: UNK
     Route: 048
  3. ETHAMBUTOL [Concomitant]
     Active Substance: ETHAMBUTOL HYDROCHLORIDE
     Indication: ATYPICAL MYCOBACTERIAL INFECTION
     Route: 048
  4. RIFAMPICIN [Concomitant]
     Active Substance: RIFAMPIN
     Dosage: UNK
     Route: 048
     Dates: start: 201504
  5. LEVOFLOXACIN. [Concomitant]
     Active Substance: LEVOFLOXACIN
     Indication: ATYPICAL MYCOBACTERIAL INFECTION
     Route: 065
     Dates: start: 201504
  6. CLARITHROMYCIN. [Suspect]
     Active Substance: CLARITHROMYCIN
     Dosage: ??
     Route: 065
     Dates: start: 201504

REACTIONS (3)
  - Infectious pleural effusion [Recovered/Resolved]
  - Visual impairment [Unknown]
  - Aspergillus infection [Recovered/Resolved]
